FAERS Safety Report 25178475 (Version 1)
Quarter: 2025Q2

REPORT INFORMATION
  Report Type: Spontaneous
  Country: US (occurrence: US)
  Receive Date: 20250409
  Receipt Date: 20250409
  Transmission Date: 20250717
  Serious: Yes (Other)
  Sender: Unknown Manufacturer
  Company Number: US-MIRUM PHARMACEUTICALS, INC.-US-MIR-25-00063

PATIENT

DRUGS (5)
  1. LIVMARLI [Suspect]
     Active Substance: MARALIXIBAT CHLORIDE
     Indication: Progressive familial intrahepatic cholestasis
     Dosage: 380 MICROGRAM/KILOGRAM, BID
     Route: 048
     Dates: start: 20240816, end: 20241013
  2. LIVMARLI [Suspect]
     Active Substance: MARALIXIBAT CHLORIDE
     Dosage: 190 MICROGRAM/KILOGRAM, BID
     Route: 048
     Dates: start: 20240721, end: 20240815
  3. LIVMARLI [Suspect]
     Active Substance: MARALIXIBAT CHLORIDE
     Dosage: 190 MICROGRAM/KILOGRAM, QD
     Route: 048
     Dates: start: 20240714, end: 20240720
  4. URSODIOL [Concomitant]
     Active Substance: URSODIOL
     Indication: Cholestasis of pregnancy
     Dosage: 1800 MILLIGRAM, QD
     Route: 048
  5. VITAMIN D NOS [Concomitant]
     Active Substance: CHOLECALCIFEROL\ERGOCALCIFEROL
     Indication: Supplementation therapy
     Route: 048

REACTIONS (4)
  - Meconium in amniotic fluid [Unknown]
  - Steatorrhoea [Recovered/Resolved]
  - Vitamin K decreased [Recovered/Resolved]
  - Maternal exposure during pregnancy [Unknown]

NARRATIVE: CASE EVENT DATE: 20240714
